FAERS Safety Report 12603798 (Version 1)
Quarter: 2016Q3

REPORT INFORMATION
  Report Type: Spontaneous
  Country: US (occurrence: US)
  Receive Date: 20160728
  Receipt Date: 20160728
  Transmission Date: 20161109
  Serious: No
  Sender: FDA-Public Use
  Company Number: US-MYLANLABS-2015M1040544

PATIENT
  Age: 69 Year
  Sex: Female
  Weight: 135.6 kg

DRUGS (1)
  1. LEVOTHYROXINE SODIUM TABLETS, USP [Suspect]
     Active Substance: LEVOTHYROXINE SODIUM
     Indication: THYROID THERAPY
     Dosage: 25 ?G, AM
     Route: 048
     Dates: start: 201501, end: 20151102

REACTIONS (4)
  - Alopecia [Not Recovered/Not Resolved]
  - Feeling abnormal [Recovered/Resolved]
  - Reaction to drug excipients [Recovered/Resolved]
  - Weight increased [Not Recovered/Not Resolved]

NARRATIVE: CASE EVENT DATE: 201501
